FAERS Safety Report 19104922 (Version 2)
Quarter: 2022Q1

REPORT INFORMATION
  Report Type: Spontaneous
  Country: CA (occurrence: CA)
  Receive Date: 20210407
  Receipt Date: 20220307
  Transmission Date: 20220423
  Serious: Yes (Other)
  Sender: FDA-Public Use
  Company Number: CA-PFIZER INC-2021359817

PATIENT
  Age: 81 Year
  Sex: Female

DRUGS (2)
  1. METHOTREXATE SODIUM [Suspect]
     Active Substance: METHOTREXATE SODIUM
     Indication: Rheumatoid arthritis
     Dosage: 17.5 MG
     Route: 048
  2. METHOTREXATE SODIUM [Suspect]
     Active Substance: METHOTREXATE SODIUM
     Indication: Rheumatoid arthritis
     Dosage: 25MG (15MG FOR OVER 65 YEARS) MINIMUM 8 WEEKS REQUIRED
     Route: 051

REACTIONS (2)
  - Lung disorder [Unknown]
  - Drug ineffective [Unknown]
